FAERS Safety Report 7415427-3 (Version None)
Quarter: 2011Q2

REPORT INFORMATION
  Report Type: 
  Country: None (occurrence: None)
  Receive Date: 20110414
  Receipt Date: 20100401
  Transmission Date: 20111010
  Serious: No
  Sender: FDA-Public Use
  Company Number: US-MYLANLABS-2010S1005748

PATIENT

DRUGS (1)
  1. VERAPAMIL HCL [Suspect]

REACTIONS (1)
  - BLOOD PRESSURE SYSTOLIC INCREASED [None]
